FAERS Safety Report 8909408 (Version 1)
Quarter: 2012Q4

REPORT INFORMATION
  Report Type: Spontaneous
  Country: KR (occurrence: None)
  Receive Date: 20121109
  Receipt Date: 20121109
  Transmission Date: 20130627
  Serious: Yes (Other)
  Sender: FDA-Public Use
  Company Number: 1483283

PATIENT
  Age: 18 Year
  Sex: Male

DRUGS (2)
  1. METHOTREXATE [Suspect]
     Indication: B LYMPHOBLASTIC LEUKEMIA
     Dosage: Not Reported, UNKNOWN, Intrathecal
     Route: 039
  2. VINCRISTINE SULFATE [Suspect]
     Dosage: Not Reported, UNKNOWN, UNKNOWN

REACTIONS (2)
  - Pneumatosis intestinalis [None]
  - Decreased appetite [None]
